FAERS Safety Report 4306166-6 (Version None)
Quarter: 2004Q1

REPORT INFORMATION
  Report Type: 
  Country: None (occurrence: None)
  Receive Date: 20040225
  Receipt Date: 20030213
  Transmission Date: 20041129
  Serious: No
  Sender: FDA-Public Use
  Company Number: US-BRISTOL-MYERS SQUIBB COMPANY-12212163

PATIENT
  Age: 85 Year
  Sex: Male
  Weight: 98 kg

DRUGS (5)
  1. EXCEDRIN ES TABS [Suspect]
     Indication: ARTHRITIS
     Dosage: EXCEDRIN TAKEN FOR ^A LONG TIME.^  ABOVE DOSAGE FOR 2-3 MONTHS, 9-12 TABLETS DAILY WHEN NEEDED.
     Route: 048
  2. ENALAPRIL MALEATE [Concomitant]
  3. HYTRIN [Concomitant]
  4. FUROSEMIDE [Concomitant]
  5. METHSUXIMIDE [Concomitant]

REACTIONS (1)
  - CONSTIPATION [None]
